FAERS Safety Report 26071898 (Version 1)
Quarter: 2025Q4

REPORT INFORMATION
  Report Type: Spontaneous
  Country: EU (occurrence: EU)
  Receive Date: 20251120
  Receipt Date: 20251120
  Transmission Date: 20260119
  Serious: Yes (Hospitalization)
  Sender: MYLAN
  Company Number: None

PATIENT
  Age: 55 Year
  Sex: Male
  Weight: 68 kg

DRUGS (24)
  1. PACLITAXEL [Suspect]
     Active Substance: PACLITAXEL
     Indication: Lung neoplasm malignant
     Dosage: 348 MILLIGRAM, CYCLE, C4
     Dates: start: 20250611, end: 20250812
  2. PACLITAXEL [Suspect]
     Active Substance: PACLITAXEL
     Dosage: 348 MILLIGRAM, CYCLE, C4
     Route: 042
     Dates: start: 20250611, end: 20250812
  3. PACLITAXEL [Suspect]
     Active Substance: PACLITAXEL
     Dosage: 348 MILLIGRAM, CYCLE, C4
     Route: 042
     Dates: start: 20250611, end: 20250812
  4. PACLITAXEL [Suspect]
     Active Substance: PACLITAXEL
     Dosage: 348 MILLIGRAM, CYCLE, C4
     Dates: start: 20250611, end: 20250812
  5. CARBOPLATIN [Suspect]
     Active Substance: CARBOPLATIN
     Indication: Lung neoplasm malignant
     Dosage: 480 MILLIGRAM, CYCLE, C4
     Dates: start: 20250611, end: 20250812
  6. CARBOPLATIN [Suspect]
     Active Substance: CARBOPLATIN
     Dosage: 480 MILLIGRAM, CYCLE, C4
     Route: 042
     Dates: start: 20250611, end: 20250812
  7. CARBOPLATIN [Suspect]
     Active Substance: CARBOPLATIN
     Dosage: 480 MILLIGRAM, CYCLE, C4
     Route: 042
     Dates: start: 20250611, end: 20250812
  8. CARBOPLATIN [Suspect]
     Active Substance: CARBOPLATIN
     Dosage: 480 MILLIGRAM, CYCLE, C4
     Dates: start: 20250611, end: 20250812
  9. METHYLPREDNISOLONE [Suspect]
     Active Substance: METHYLPREDNISOLONE
     Indication: Lung neoplasm malignant
     Dosage: 120 MILLIGRAM, CYCLE, C4
     Dates: start: 20250611, end: 20250812
  10. METHYLPREDNISOLONE [Suspect]
     Active Substance: METHYLPREDNISOLONE
     Dosage: 120 MILLIGRAM, CYCLE, C4
     Route: 042
     Dates: start: 20250611, end: 20250812
  11. METHYLPREDNISOLONE [Suspect]
     Active Substance: METHYLPREDNISOLONE
     Dosage: 120 MILLIGRAM, CYCLE, C4
     Route: 042
     Dates: start: 20250611, end: 20250812
  12. METHYLPREDNISOLONE [Suspect]
     Active Substance: METHYLPREDNISOLONE
     Dosage: 120 MILLIGRAM, CYCLE, C4
     Dates: start: 20250611, end: 20250812
  13. CETIRIZINE [Suspect]
     Active Substance: CETIRIZINE HYDROCHLORIDE
     Indication: Lung neoplasm malignant
     Dosage: 10 MILLIGRAM, CYCLE, C4
     Dates: start: 20250611, end: 20250812
  14. CETIRIZINE [Suspect]
     Active Substance: CETIRIZINE HYDROCHLORIDE
     Dosage: 10 MILLIGRAM, CYCLE, C4
     Route: 048
     Dates: start: 20250611, end: 20250812
  15. CETIRIZINE [Suspect]
     Active Substance: CETIRIZINE HYDROCHLORIDE
     Dosage: 10 MILLIGRAM, CYCLE, C4
     Route: 048
     Dates: start: 20250611, end: 20250812
  16. CETIRIZINE [Suspect]
     Active Substance: CETIRIZINE HYDROCHLORIDE
     Dosage: 10 MILLIGRAM, CYCLE, C4
     Dates: start: 20250611, end: 20250812
  17. ONDANSETRON [Suspect]
     Active Substance: ONDANSETRON
     Indication: Lung neoplasm malignant
     Dosage: 8 MILLIGRAM, CYCLE, C4
     Dates: start: 20250611, end: 20250812
  18. ONDANSETRON [Suspect]
     Active Substance: ONDANSETRON
     Dosage: 8 MILLIGRAM, CYCLE, C4
     Route: 048
     Dates: start: 20250611, end: 20250812
  19. ONDANSETRON [Suspect]
     Active Substance: ONDANSETRON
     Dosage: 8 MILLIGRAM, CYCLE, C4
     Route: 048
     Dates: start: 20250611, end: 20250812
  20. ONDANSETRON [Suspect]
     Active Substance: ONDANSETRON
     Dosage: 8 MILLIGRAM, CYCLE, C4
     Dates: start: 20250611, end: 20250812
  21. PEMBROLIZUMAB [Suspect]
     Active Substance: PEMBROLIZUMAB
     Indication: Lung neoplasm malignant
     Dosage: 200 MILLIGRAM, CYCLE, C4
     Dates: start: 20250611, end: 20250812
  22. PEMBROLIZUMAB [Suspect]
     Active Substance: PEMBROLIZUMAB
     Dosage: 200 MILLIGRAM, CYCLE, C4
     Route: 042
     Dates: start: 20250611, end: 20250812
  23. PEMBROLIZUMAB [Suspect]
     Active Substance: PEMBROLIZUMAB
     Dosage: 200 MILLIGRAM, CYCLE, C4
     Route: 042
     Dates: start: 20250611, end: 20250812
  24. PEMBROLIZUMAB [Suspect]
     Active Substance: PEMBROLIZUMAB
     Dosage: 200 MILLIGRAM, CYCLE, C4
     Dates: start: 20250611, end: 20250812

REACTIONS (3)
  - Rash maculo-papular [Recovering/Resolving]
  - Pyrexia [Recovered/Resolved]
  - Oedema peripheral [Recovering/Resolving]

NARRATIVE: CASE EVENT DATE: 20250812
